FAERS Safety Report 4662594-0 (Version None)
Quarter: 2005Q2

REPORT INFORMATION
  Report Type: 
  Country: None (occurrence: None)
  Receive Date: 20050516
  Receipt Date: 20050506
  Transmission Date: 20051028
  Serious: Yes (Disabling)
  Sender: FDA-Public Use
  Company Number: 2005AP02728

PATIENT
  Age: 420 Month
  Sex: Female
  Weight: 38 kg

DRUGS (1)
  1. SEROQUEL [Suspect]
     Indication: SCHIZOPHRENIA
     Route: 048
     Dates: start: 20030901

REACTIONS (3)
  - BLISTER [None]
  - MALNUTRITION [None]
  - ORAL MUCOSAL BLISTERING [None]
